FAERS Safety Report 6619267-4 (Version None)
Quarter: 2010Q1

REPORT INFORMATION
  Report Type: 
  Country: None (occurrence: None)
  Receive Date: 20100303
  Receipt Date: 20100217
  Transmission Date: 20100710
  Serious: Yes (Hospitalization)
  Sender: FDA-Public Use
  Company Number: 008914

PATIENT

DRUGS (2)
  1. CILOSTAZOL         (CILOSTAZOL) [Suspect]
     Dosage: ORAL
     Route: 048
  2. ANTIHYPERTENSIVES [Suspect]

REACTIONS (6)
  - CONDITION AGGRAVATED [None]
  - DRUG INTERACTION [None]
  - GASTROENTERITIS [None]
  - HYPOTENSION [None]
  - RENAL FAILURE [None]
  - SYNCOPE [None]
